FAERS Safety Report 12715321 (Version 2)
Quarter: 2018Q2

REPORT INFORMATION
  Report Type: Spontaneous
  Country: JP (occurrence: JP)
  Receive Date: 20160906
  Receipt Date: 20180425
  Transmission Date: 20180711
  Serious: Yes (Other)
  Sender: FDA-Public Use
  Company Number: JP-BRISTOL-MYERS SQUIBB COMPANY-BMS-2016-072655

PATIENT
  Age: 6 Decade
  Sex: Female

DRUGS (1)
  1. ORENCIA [Suspect]
     Active Substance: ABATACEPT
     Indication: RHEUMATOID ARTHRITIS
     Dosage: 125 MG, SINGLE
     Route: 058

REACTIONS (1)
  - Lymphoma [Unknown]
